FAERS Safety Report 4664769-3 (Version None)
Quarter: 2005Q2

REPORT INFORMATION
  Report Type: 
  Country: None (occurrence: None)
  Receive Date: 20050517
  Receipt Date: 20050517
  Transmission Date: 20051028
  Serious: Yes (Hospitalization)
  Sender: FDA-Public Use
  Company Number: None

PATIENT
  Age: 85 Year
  Sex: Male
  Weight: 89 kg

DRUGS (3)
  1. SPIRONOLACTONE [Suspect]
     Indication: CARDIAC FAILURE CONGESTIVE
     Dosage: PO DAILY
     Route: 048
     Dates: start: 19951001, end: 20050301
  2. POTASSIUM CHLORIDE 10MEQ [Suspect]
     Dosage: PO 2 X /WEEK
     Route: 048
     Dates: start: 20030601, end: 20050301
  3. ENALAPRIL MALEATE [Concomitant]

REACTIONS (1)
  - BLOOD POTASSIUM INCREASED [None]
